FAERS Safety Report 17822425 (Version 1)
Quarter: 2020Q2

REPORT INFORMATION
  Report Type: Spontaneous
  Country: US (occurrence: US)
  Receive Date: 20200526
  Receipt Date: 20200526
  Transmission Date: 20200714
  Serious: Yes (Other)
  Sender: FDA-Public Use
  Company Number: US-SUN PHARMACEUTICAL INDUSTRIES LTD-2019R1-206299

PATIENT
  Age: 84 Year
  Sex: Male

DRUGS (2)
  1. DESVENLAFAXINE. [Suspect]
     Active Substance: DESVENLAFAXINE
     Indication: GENERALISED ANXIETY DISORDER
  2. DESVENLAFAXINE. [Suspect]
     Active Substance: DESVENLAFAXINE
     Indication: DEPRESSION
     Dosage: 50 MILLIGRAM, DAILY
     Route: 048

REACTIONS (2)
  - Tardive dyskinesia [Recovered/Resolved]
  - Withdrawal syndrome [Recovered/Resolved]
